FAERS Safety Report 8470697-8 (Version None)
Quarter: 2012Q2

REPORT INFORMATION
  Report Type: 
  Country: None (occurrence: None)
  Receive Date: 20120627
  Receipt Date: 20120621
  Transmission Date: 20120825
  Serious: No
  Sender: FDA-Public Use
  Company Number: US-PFIZER INC-2012150399

PATIENT
  Sex: Male
  Weight: 90.703 kg

DRUGS (6)
  1. METFORMIN [Concomitant]
     Indication: TYPE 2 DIABETES MELLITUS
     Dosage: UNK
  2. GLIPIZIDE [Concomitant]
     Indication: TYPE 2 DIABETES MELLITUS
     Dosage: UNK
  3. VESICARE [Suspect]
     Indication: MICTURITION DISORDER
     Dosage: 5 MG, 1X/DAY
     Dates: start: 20120601, end: 20120619
  4. FLOMAX [Interacting]
     Dosage: UNK
     Dates: start: 20120601
  5. TOVIAZ [Interacting]
     Indication: MICTURITION DISORDER
     Dosage: 4 MG, 1X/DAY AT NIGHT
     Dates: start: 20120619
  6. FLOMAX [Interacting]
     Indication: PROSTATIC DISORDER
     Dosage: UNK, 2X/DAY

REACTIONS (4)
  - PAIN [None]
  - DRUG INEFFECTIVE [None]
  - DYSURIA [None]
  - DRUG INTERACTION [None]
